FAERS Safety Report 16122159 (Version 1)
Quarter: 2019Q1

REPORT INFORMATION
  Report Type: Spontaneous
  Country: US (occurrence: US)
  Receive Date: 20190327
  Receipt Date: 20190327
  Transmission Date: 20190418
  Serious: No
  Sender: FDA-Public Use
  Company Number: US-PFIZER INC-2017504821

PATIENT
  Age: 6 Year
  Sex: Female
  Weight: 15.87 kg

DRUGS (4)
  1. GENOTROPIN [Suspect]
     Active Substance: SOMATROPIN
     Dosage: 0.4 MG, DAILY
     Dates: start: 2018
  2. GENOTROPIN [Suspect]
     Active Substance: SOMATROPIN
     Indication: BLOOD GROWTH HORMONE
     Dosage: 0.4 MG, DAILY
     Dates: start: 20170601
  3. GENOTROPIN [Suspect]
     Active Substance: SOMATROPIN
     Dosage: UNK
     Dates: start: 201804
  4. GENOTROPIN [Suspect]
     Active Substance: SOMATROPIN
     Indication: EWING^S SARCOMA
     Dosage: 0.6 MG, 1X/DAY
     Dates: start: 201709

REACTIONS (3)
  - Product dose omission [Not Recovered/Not Resolved]
  - Insulin-like growth factor increased [Unknown]
  - Wrong technique in device usage process [Unknown]

NARRATIVE: CASE EVENT DATE: 20181117
